FAERS Safety Report 16837936 (Version 1)
Quarter: 2019Q3

REPORT INFORMATION
  Report Type: Spontaneous
  Country: FR (occurrence: FR)
  Receive Date: 20190923
  Receipt Date: 20190923
  Transmission Date: 20191005
  Serious: Yes (Other)
  Sender: FDA-Public Use
  Company Number: FR-TEVA-2019-FR-1110866

PATIENT
  Age: 31 Year
  Sex: Female

DRUGS (1)
  1. PREDNISOLONE. [Suspect]
     Active Substance: PREDNISOLONE
     Indication: LARYNGITIS
     Dosage: 50MG/ DAY/ 3 DAYS
     Route: 048
     Dates: start: 20190725, end: 20190728

REACTIONS (1)
  - Myopia [Recovered/Resolved]

NARRATIVE: CASE EVENT DATE: 20190726
